FAERS Safety Report 19220964 (Version 2)
Quarter: 2021Q2

REPORT INFORMATION
  Report Type: Spontaneous
  Country: IT (occurrence: IT)
  Receive Date: 20210506
  Receipt Date: 20210511
  Transmission Date: 20210717
  Serious: Yes (Hospitalization, Other)
  Sender: FDA-Public Use
  Company Number: NVSC2021IT100842

PATIENT
  Age: 25 Year
  Sex: Female

DRUGS (6)
  1. ADALIMUMAB [Suspect]
     Active Substance: ADALIMUMAB
     Indication: PSORIATIC ARTHROPATHY
  2. PREDNISONE. [Suspect]
     Active Substance: PREDNISONE
     Dosage: 2.5 MG, 5QD
     Route: 065
  3. PREDNISONE. [Suspect]
     Active Substance: PREDNISONE
     Indication: SKIN LESION
     Dosage: 50 MG, QD (2 WEEKS A SCALAR)
     Route: 065
  4. PREDNISONE. [Suspect]
     Active Substance: PREDNISONE
     Dosage: 5 MG, QD
     Route: 065
  5. IBUPROFEN. [Suspect]
     Active Substance: IBUPROFEN
     Indication: SKIN LESION
     Dosage: 600 MG, BID
     Route: 065
  6. ADALIMUMAB [Suspect]
     Active Substance: ADALIMUMAB
     Indication: AUTOIMMUNE THYROIDITIS
     Dosage: 40 MG (21 DAYS)
     Route: 058

REACTIONS (11)
  - Arthralgia [Recovered/Resolved]
  - Polyneuropathy [Unknown]
  - Pain [Unknown]
  - Dysaesthesia [Unknown]
  - Pneumonia [Unknown]
  - Oedema peripheral [Unknown]
  - Purpura [Recovered/Resolved]
  - Muscular weakness [Unknown]
  - Haematuria [Unknown]
  - Neuralgia [Recovering/Resolving]
  - Proteinuria [Recovering/Resolving]
